FAERS Safety Report 9185794 (Version 2)
Quarter: 2013Q2

REPORT INFORMATION
  Report Type: Spontaneous
  Country: US (occurrence: US)
  Receive Date: 20130325
  Receipt Date: 20130412
  Transmission Date: 20140414
  Serious: No
  Sender: FDA-Public Use
  Company Number: US-009507513-1303USA009611

PATIENT
  Sex: Female

DRUGS (3)
  1. PEGINTRON [Suspect]
     Indication: HEPATITIS C
     Dosage: 80 MICROGRAM, QW
     Route: 058
     Dates: start: 201203, end: 201205
  2. RIBASPHERE [Suspect]
     Indication: HEPATITIS C
     Dosage: UNK
     Dates: end: 201205
  3. LEVOTHYROXINE SODIUM [Concomitant]

REACTIONS (2)
  - Dysgeusia [Not Recovered/Not Resolved]
  - White blood cell count decreased [Not Recovered/Not Resolved]
